FAERS Safety Report 14589866 (Version 1)
Quarter: 2018Q1

REPORT INFORMATION
  Report Type: Spontaneous
  Country: US (occurrence: US)
  Receive Date: 20180302
  Receipt Date: 20180302
  Transmission Date: 20180509
  Serious: No
  Sender: FDA-Public Use
  Company Number: US-TEVA-2018-US-856188

PATIENT
  Sex: Female

DRUGS (1)
  1. TRAZODONE HYDROCHLORIDE. [Suspect]
     Active Substance: TRAZODONE HYDROCHLORIDE
     Indication: INSOMNIA
     Dosage: 2 DOSAGE FORMS DAILY; BEDTIME, 100 MG
     Dates: start: 2017

REACTIONS (1)
  - Drug prescribing error [Unknown]

NARRATIVE: CASE EVENT DATE: 2017
